FAERS Safety Report 6049483-4 (Version None)
Quarter: 2009Q1

REPORT INFORMATION
  Report Type: 
  Country: None (occurrence: None)
  Receive Date: 20090121
  Receipt Date: 20090109
  Transmission Date: 20090719
  Serious: Yes (Hospitalization)
  Sender: FDA-Public Use
  Company Number: 2009-189355-NL

PATIENT
  Sex: Male

DRUGS (2)
  1. MIRTAZAPINE [Suspect]
     Indication: DEPRESSION
     Dosage: DF ORAL
     Route: 048
     Dates: start: 20081020, end: 20081120
  2. PANTOPRAZOLE SODIUM [Concomitant]

REACTIONS (3)
  - HEPATITIS CHOLESTATIC [None]
  - HEPATITIS TOXIC [None]
  - WEIGHT DECREASED [None]
